FAERS Safety Report 17358361 (Version 1)
Quarter: 2020Q1

REPORT INFORMATION
  Report Type: Other
  Country: US (occurrence: US)
  Receive Date: 20200201
  Receipt Date: 20200201
  Transmission Date: 20200409
  Serious: Yes (Hospitalization)
  Sender: FDA-Public Use
  Company Number: US-VGYAAN PHARMACEUTICALS LLC-2079704

PATIENT
  Age: 72 Year
  Sex: Male

DRUGS (1)
  1. NADOLOL. [Suspect]
     Active Substance: NADOLOL
     Indication: PRODUCT USED FOR UNKNOWN INDICATION
     Route: 065

REACTIONS (4)
  - Toxicity to various agents [Recovering/Resolving]
  - Hypothyroidism [Recovering/Resolving]
  - Myxoedema [Recovering/Resolving]
  - Extra dose administered [Recovering/Resolving]
